FAERS Safety Report 10785496 (Version 1)
Quarter: 2015Q1

REPORT INFORMATION
  Report Type: Spontaneous
  Country: US (occurrence: None)
  Receive Date: 20150210
  Receipt Date: 20150210
  Transmission Date: 20150721
  Serious: Yes (Hospitalization)
  Sender: FDA-Public Use
  Company Number: None

PATIENT
  Age: 54 Year
  Sex: Male

DRUGS (2)
  1. CYTARABINE. [Suspect]
     Active Substance: CYTARABINE
  2. IDARUBICIN [Suspect]
     Active Substance: IDARUBICIN

REACTIONS (4)
  - Acute respiratory failure [None]
  - Pancytopenia [None]
  - Renal failure [None]
  - General physical health deterioration [None]

NARRATIVE: CASE EVENT DATE: 20150130
